FAERS Safety Report 24557102 (Version 1)
Quarter: 2024Q4

REPORT INFORMATION
  Report Type: Spontaneous
  Country: CZ (occurrence: CZ)
  Receive Date: 20241028
  Receipt Date: 20241028
  Transmission Date: 20250114
  Serious: Yes (Other)
  Sender: AUROBINDO
  Company Number: CZ-AUROBINDO-AUR-APL-2024-048933

PATIENT
  Age: 42 Year
  Sex: Male
  Weight: 135 kg

DRUGS (4)
  1. METFORMIN [Suspect]
     Active Substance: METFORMIN HYDROCHLORIDE
     Indication: Type 2 diabetes mellitus
     Dosage: 1500 MILLIGRAM, ONCE A DAY
     Route: 065
  2. METFORMIN [Suspect]
     Active Substance: METFORMIN HYDROCHLORIDE
     Dosage: STARTED WITH A GRADUAL TITRATION OF METFORMIN TO A DOSE OF 2000 MG PER DAY
     Route: 065
  3. OMEPRAZOLE [Suspect]
     Active Substance: OMEPRAZOLE
     Indication: Type 2 diabetes mellitus
     Dosage: UNK
     Route: 065
  4. GLIMEPIRIDE [Suspect]
     Active Substance: GLIMEPIRIDE
     Indication: Type 2 diabetes mellitus

REACTIONS (2)
  - Diabetes mellitus inadequate control [Recovering/Resolving]
  - Drug ineffective [Unknown]
